FAERS Safety Report 21451575 (Version 1)
Quarter: 2022Q4

REPORT INFORMATION
  Report Type: Spontaneous
  Country: US (occurrence: US)
  Receive Date: 20221013
  Receipt Date: 20221013
  Transmission Date: 20230112
  Serious: No
  Sender: FDA-Public Use
  Company Number: US-INDIVIOR US-INDV-102287-2017

PATIENT
  Sex: Male

DRUGS (3)
  1. SUBOXONE [Suspect]
     Active Substance: BUPRENORPHINE HYDROCHLORIDE\NALOXONE HYDROCHLORIDE
     Indication: Drug dependence
     Dosage: 8 MILLIGRAM
     Route: 060
  2. SUBOXONE [Suspect]
     Active Substance: BUPRENORPHINE HYDROCHLORIDE\NALOXONE HYDROCHLORIDE
     Dosage: UNK, BY CUTTING INTO HALF
     Route: 060
  3. SUBOXONE [Suspect]
     Active Substance: BUPRENORPHINE HYDROCHLORIDE\NALOXONE HYDROCHLORIDE
     Dosage: UNK (TO GET CLEAN)
     Route: 065
     Dates: end: 202201

REACTIONS (4)
  - Inappropriate schedule of product discontinuation [Recovered/Resolved]
  - Feeling abnormal [Not Recovered/Not Resolved]
  - Drug dependence [Unknown]
  - Wrong technique in product usage process [Recovered/Resolved]
